FAERS Safety Report 14092873 (Version 2)
Quarter: 2017Q4

REPORT INFORMATION
  Report Type: Spontaneous
  Country: US (occurrence: US)
  Receive Date: 20171016
  Receipt Date: 20171211
  Transmission Date: 20180321
  Serious: No
  Sender: FDA-Public Use
  Company Number: US-BAYER-2017-198470

PATIENT
  Age: 47 Year
  Sex: Female
  Weight: 80.8 kg

DRUGS (3)
  1. MIRENA [Suspect]
     Active Substance: LEVONORGESTREL
  2. MIRENA [Suspect]
     Active Substance: LEVONORGESTREL
     Indication: CONTRACEPTION
     Dosage: 20 MCG/24HR, CONT
     Route: 015
     Dates: start: 20170927
  3. MIRENA [Suspect]
     Active Substance: LEVONORGESTREL
     Indication: MENORRHAGIA

REACTIONS (6)
  - Cervical cyst [None]
  - Device expulsion [None]
  - Metrorrhagia [None]
  - Multiple use of single-use product [None]
  - Uterine enlargement [None]
  - Uterine leiomyoma [None]

NARRATIVE: CASE EVENT DATE: 2017
